FAERS Safety Report 15546384 (Version 1)
Quarter: 2018Q4

REPORT INFORMATION
  Report Type: Report from Study
  Country: ES (occurrence: ES)
  Receive Date: 20181024
  Receipt Date: 20181024
  Transmission Date: 20190205
  Serious: Yes (Hospitalization)
  Sender: FDA-Public Use
  Company Number: ES-SA-2018SA287469

PATIENT
  Sex: Male
  Weight: 118 kg

DRUGS (2)
  1. INSULIN GLARGINE [Suspect]
     Active Substance: INSULIN GLARGINE
     Indication: TYPE 2 DIABETES MELLITUS
     Dosage: 20 IU, QD
     Route: 058
  2. INSULIN GLARGINE [Suspect]
     Active Substance: INSULIN GLARGINE
     Dosage: UNK
     Route: 065

REACTIONS (7)
  - Product storage error [Unknown]
  - Headache [Unknown]
  - Memory impairment [Unknown]
  - Malaise [Unknown]
  - Hyperglycaemia [Unknown]
  - Weight decreased [Recovered/Resolved]
  - Product dose omission [Unknown]
